FAERS Safety Report 4901080-7 (Version None)
Quarter: 2006Q1

REPORT INFORMATION
  Report Type: 
  Country: None (occurrence: None)
  Receive Date: 20060113
  Receipt Date: 20050915
  Transmission Date: 20060701
  Serious: No
  Sender: FDA-Public Use
  Company Number: 2005SP001051

PATIENT
  Age: 68 Year
  Sex: Female
  Weight: 56.6996 kg

DRUGS (7)
  1. LUNESTA [Suspect]
     Indication: INSOMNIA
     Dosage: 3 MG;HS;ORAL
     Route: 048
     Dates: start: 20050425
  2. ATIVAN [Concomitant]
  3. TOPROL-XL [Concomitant]
  4. AMLODIPINE BESYLATE [Concomitant]
  5. TOFRANIL [Concomitant]
  6. SINGULAIR [Concomitant]
  7. FOSAMAX ONCE WEEKLY [Concomitant]

REACTIONS (1)
  - DYSGEUSIA [None]
